FAERS Safety Report 25328430 (Version 1)
Quarter: 2025Q2

REPORT INFORMATION
  Report Type: Spontaneous
  Country: US (occurrence: US)
  Receive Date: 20250518
  Receipt Date: 20250518
  Transmission Date: 20250716
  Serious: No
  Sender: BAUSCH AND LOMB
  Company Number: US-BAUSCHBL-2025BNL008464

PATIENT
  Age: 36 Year
  Sex: Male

DRUGS (2)
  1. OFLOXACIN OPHTHALMIC [Suspect]
     Active Substance: OFLOXACIN
     Indication: Dacryostenosis acquired
     Route: 047
     Dates: start: 20250507
  2. NEOMYCIN AND POLYMYXIN B SULFATES, AND BACITRACIN ZINC [Suspect]
     Active Substance: BACITRACIN ZINC\NEOMYCIN SULFATE\POLYMYXIN B SULFATE
     Indication: Dacryostenosis acquired
     Route: 047
     Dates: start: 20250507

REACTIONS (6)
  - Ocular discomfort [Unknown]
  - Eye irritation [Unknown]
  - Ocular hyperaemia [Recovering/Resolving]
  - Hypoaesthesia eye [Unknown]
  - Hypoaesthesia oral [Unknown]
  - Hypoaesthesia [Unknown]

NARRATIVE: CASE EVENT DATE: 20250101
